FAERS Safety Report 4309052-0 (Version None)
Quarter: 2004Q1

REPORT INFORMATION
  Report Type: 
  Country: None (occurrence: None)
  Receive Date: 20040302
  Receipt Date: 20040224
  Transmission Date: 20041129
  Serious: Yes (Hospitalization)
  Sender: FDA-Public Use
  Company Number: 200412497GDDC

PATIENT
  Sex: Female

DRUGS (1)
  1. DDAVP [Suspect]
     Dosage: DOSE: UNK
     Route: 048

REACTIONS (4)
  - FACE OEDEMA [None]
  - HEPATOMEGALY [None]
  - OEDEMA PERIPHERAL [None]
  - SPLENOMEGALY [None]
